FAERS Safety Report 9983037 (Version 1)
Quarter: 2014Q1

REPORT INFORMATION
  Report Type: Report from Study
  Country: US (occurrence: US)
  Receive Date: 20140307
  Receipt Date: 20140307
  Transmission Date: 20141002
  Serious: No
  Sender: FDA-Public Use
  Company Number: US-ABBVIE-13P-163-1176586-00

PATIENT
  Age: 70 Year
  Sex: Female

DRUGS (8)
  1. HUMIRA [Suspect]
     Indication: RHEUMATOID ARTHRITIS
     Dates: start: 201309
  2. UNKNOWN MEDICATION FOR RA [Suspect]
     Indication: RHEUMATOID ARTHRITIS
     Dates: end: 201310
  3. UNKNOWN MEDICATION FOR HIGH CHOLESTERO L [Suspect]
     Indication: BLOOD CHOLESTEROL INCREASED
     Dates: end: 201310
  4. GABAPENTIN [Concomitant]
     Indication: NEUROPATHY PERIPHERAL
     Dosage: AT BEDTIME
  5. OMEPRAZOLE [Concomitant]
     Indication: GASTROOESOPHAGEAL REFLUX DISEASE
  6. FOLIC ACID [Concomitant]
     Indication: PRODUCT USED FOR UNKNOWN INDICATION
  7. AMLODIPINE BESYLATE [Concomitant]
     Indication: HYPERTENSION
  8. HYDROCHLOROTHIAZIDE W/LOSARTAN [Concomitant]
     Indication: HYPERTENSION
     Dosage: 100/25 MG, DAILY

REACTIONS (2)
  - Hepatic enzyme increased [Unknown]
  - Injection site discomfort [Recovered/Resolved]
